FAERS Safety Report 20520121 (Version 2)
Quarter: 2022Q3

REPORT INFORMATION
  Report Type: Spontaneous
  Country: US (occurrence: None)
  Receive Date: 20220225
  Receipt Date: 20220809
  Transmission Date: 20221027
  Serious: Yes (Other)
  Sender: FDA-Public Use
  Company Number: 2022A079591

PATIENT
  Age: 20654 Day
  Sex: Female
  Weight: 47.2 kg

DRUGS (63)
  1. NEXIUM [Suspect]
     Active Substance: ESOMEPRAZOLE MAGNESIUM
     Indication: Gastrooesophageal reflux disease
     Route: 048
     Dates: start: 2009, end: 2017
  2. NEXIUM [Suspect]
     Active Substance: ESOMEPRAZOLE MAGNESIUM
     Indication: Gastrooesophageal reflux disease
     Route: 048
     Dates: start: 2009, end: 2017
  3. NEXIUM [Suspect]
     Active Substance: ESOMEPRAZOLE MAGNESIUM
     Indication: Gastrooesophageal reflux disease
     Route: 048
     Dates: start: 2001, end: 2017
  4. NEXIUM [Suspect]
     Active Substance: ESOMEPRAZOLE MAGNESIUM
     Indication: Gastrooesophageal reflux disease
     Route: 048
     Dates: start: 2001, end: 2017
  5. NEXIUM [Suspect]
     Active Substance: ESOMEPRAZOLE MAGNESIUM
     Indication: Gastrooesophageal reflux disease
     Dosage: GENERIC
     Route: 065
     Dates: start: 2017
  6. NEXIUM [Suspect]
     Active Substance: ESOMEPRAZOLE MAGNESIUM
     Indication: Gastrooesophageal reflux disease
     Dosage: GENERIC
     Route: 065
     Dates: start: 2017
  7. NEXIUM 24HR [Suspect]
     Active Substance: ESOMEPRAZOLE MAGNESIUM
     Indication: Gastrooesophageal reflux disease
     Route: 048
     Dates: start: 2014, end: 2017
  8. NEXIUM 24HR [Suspect]
     Active Substance: ESOMEPRAZOLE MAGNESIUM
     Indication: Gastrooesophageal reflux disease
     Route: 048
     Dates: start: 2014, end: 2017
  9. PRILOSEC [Suspect]
     Active Substance: OMEPRAZOLE MAGNESIUM
     Indication: Gastrooesophageal reflux disease
     Route: 048
     Dates: start: 1989, end: 2017
  10. PRILOSEC [Suspect]
     Active Substance: OMEPRAZOLE MAGNESIUM
     Indication: Gastrooesophageal reflux disease
     Route: 048
     Dates: start: 1989, end: 2017
  11. PRILOSEC [Suspect]
     Active Substance: OMEPRAZOLE MAGNESIUM
     Indication: Gastrooesophageal reflux disease
     Dosage: GENERIC
     Route: 065
     Dates: start: 2010
  12. PRILOSEC [Suspect]
     Active Substance: OMEPRAZOLE MAGNESIUM
     Indication: Gastrooesophageal reflux disease
     Dosage: GENERIC
     Route: 065
     Dates: start: 2010
  13. PRILOSEC [Suspect]
     Active Substance: OMEPRAZOLE MAGNESIUM
     Indication: Gastrooesophageal reflux disease
     Dosage: GENERIC
     Route: 065
     Dates: start: 2010
  14. PRILOSEC [Suspect]
     Active Substance: OMEPRAZOLE MAGNESIUM
     Indication: Gastrooesophageal reflux disease
     Dosage: GENERIC
     Route: 065
     Dates: start: 2010
  15. PRILOSEC OTC [Suspect]
     Active Substance: OMEPRAZOLE MAGNESIUM
     Indication: Gastrooesophageal reflux disease
     Route: 048
     Dates: start: 2003, end: 2017
  16. PRILOSEC OTC [Suspect]
     Active Substance: OMEPRAZOLE MAGNESIUM
     Indication: Gastrooesophageal reflux disease
     Route: 048
     Dates: start: 2003, end: 2017
  17. PROTONIX [Suspect]
     Active Substance: PANTOPRAZOLE SODIUM
     Indication: Gastrooesophageal reflux disease
     Route: 065
     Dates: start: 2000, end: 2019
  18. PROTONIX [Suspect]
     Active Substance: PANTOPRAZOLE SODIUM
     Indication: Gastrooesophageal reflux disease
     Route: 065
     Dates: start: 2000, end: 2019
  19. PROTONIX [Suspect]
     Active Substance: PANTOPRAZOLE SODIUM
     Indication: Gastrooesophageal reflux disease
     Dosage: GENERIC
     Route: 065
     Dates: start: 2012, end: 2021
  20. PROTONIX [Suspect]
     Active Substance: PANTOPRAZOLE SODIUM
     Indication: Gastrooesophageal reflux disease
     Dosage: GENERIC
     Route: 065
     Dates: start: 2012, end: 2021
  21. AVELOX [Concomitant]
     Active Substance: MOXIFLOXACIN HYDROCHLORIDE
  22. LOSARTAN [Concomitant]
     Active Substance: LOSARTAN
  23. SULFAMETHOXAZOLE\TRIMETHOPRIM [Concomitant]
     Active Substance: SULFAMETHOXAZOLE\TRIMETHOPRIM
  24. PEPCID [Concomitant]
     Active Substance: FAMOTIDINE
  25. ZANTAC [Concomitant]
     Active Substance: RANITIDINE HYDROCHLORIDE
  26. NORVASC [Concomitant]
     Active Substance: AMLODIPINE BESYLATE
  27. ASTELIN [Concomitant]
     Active Substance: AZELASTINE HYDROCHLORIDE
  28. BUMEX [Concomitant]
     Active Substance: BUMETANIDE
  29. ROCALTROL [Concomitant]
     Active Substance: CALCITRIOL
  30. BENTYL [Concomitant]
     Active Substance: DICYCLOMINE HYDROCHLORIDE
  31. VITAMIN D2 [Concomitant]
     Active Substance: ERGOCALCIFEROL
  32. FLONASE [Concomitant]
     Active Substance: FLUTICASONE PROPIONATE
  33. GARAMYCIN [Concomitant]
     Active Substance: GENTAMICIN SULFATE
  34. APRESOLINE HYDROCHLORIDE [Concomitant]
     Active Substance: HYDRALAZINE HYDROCHLORIDE
  35. LACTOBACILLUS ACIDOPHILLUS [Concomitant]
  36. EMLA [Concomitant]
     Active Substance: LIDOCAINE\PRILOCAINE
  37. GOLYTELY [Concomitant]
     Active Substance: POLYETHYLENE GLYCOL 3350\POTASSIUM CHLORIDE\SODIUM BICARBONATE\SODIUM CHLORIDE\SODIUM SULFATE
  38. RESTORA [Concomitant]
  39. SENOKOT [Concomitant]
     Active Substance: SENNOSIDES
  40. ALDACTONE [Concomitant]
     Active Substance: SPIRONOLACTONE
  41. ULTRAM [Concomitant]
     Active Substance: TRAMADOL HYDROCHLORIDE
  42. WELLBUTRIN [Concomitant]
     Active Substance: BUPROPION HYDROCHLORIDE
  43. COLACE [Concomitant]
     Active Substance: DOCUSATE SODIUM
  44. CODEINE [Concomitant]
     Active Substance: CODEINE
  45. NORCO [Concomitant]
     Active Substance: ACETAMINOPHEN\HYDROCODONE BITARTRATE
  46. ROXICODONE [Concomitant]
     Active Substance: OXYCODONE HYDROCHLORIDE
  47. NALOXONE [Concomitant]
     Active Substance: NALOXONE
  48. IODINE [Concomitant]
     Active Substance: IODINE
  49. ISOFLURANE [Concomitant]
     Active Substance: ISOFLURANE
  50. MARCAINE [Concomitant]
     Active Substance: BUPIVACAINE HYDROCHLORIDE
  51. SPIRONOLACTONE [Concomitant]
     Active Substance: SPIRONOLACTONE
  52. LIDOCAINE [Concomitant]
     Active Substance: LIDOCAINE
  53. METHOCARBAMOL [Concomitant]
     Active Substance: METHOCARBAMOL
  54. CLINDAMYCIN [Concomitant]
     Active Substance: CLINDAMYCIN
  55. ACETAMINOPHEN\HYDROCODONE BITARTRATE [Concomitant]
     Active Substance: ACETAMINOPHEN\HYDROCODONE BITARTRATE
  56. TRIAMTERENE [Concomitant]
     Active Substance: TRIAMTERENE
  57. NUCYNTA [Concomitant]
     Active Substance: TAPENTADOL HYDROCHLORIDE
  58. RESTASIS [Concomitant]
     Active Substance: CYCLOSPORINE
  59. DUREZOL [Concomitant]
     Active Substance: DIFLUPREDNATE
  60. POLYMYXIN B [Concomitant]
     Active Substance: POLYMYXIN B
  61. PROPOXYPHENE-N/APAP [Concomitant]
  62. EPINEPHRINE [Concomitant]
     Active Substance: EPINEPHRINE
  63. MORPHINE [Concomitant]
     Active Substance: MORPHINE

REACTIONS (9)
  - Acute kidney injury [Not Recovered/Not Resolved]
  - Chronic kidney disease [Not Recovered/Not Resolved]
  - End stage renal disease [Not Recovered/Not Resolved]
  - Nephrogenic anaemia [Unknown]
  - Hyperparathyroidism secondary [Unknown]
  - Renal failure [Unknown]
  - Essential hypertension [Unknown]
  - Metabolic acidosis [Unknown]
  - Gastrooesophageal reflux disease [Not Recovered/Not Resolved]

NARRATIVE: CASE EVENT DATE: 20120401
